FAERS Safety Report 5663390-8 (Version None)
Quarter: 2008Q1

REPORT INFORMATION
  Report Type: 
  Country: None (occurrence: None)
  Receive Date: 20080307
  Receipt Date: 20080220
  Transmission Date: 20080703
  Serious: Yes (Hospitalization)
  Sender: FDA-Public Use
  Company Number: DSA_31500_2008

PATIENT
  Age: 85 Year
  Sex: Female

DRUGS (15)
  1. ENALAPRIL MALEATE [Suspect]
     Indication: HYPERTENSION
     Dosage: 10 MG QD ORAL
     Route: 048
     Dates: start: 20071101
  2. NITROGLYCERIN [Suspect]
     Indication: DRUG USE FOR UNKNOWN INDICATION
     Dosage: 15 MG 1X/24 HOURS TOPICAL
     Route: 061
     Dates: start: 20071101, end: 20071127
  3. FUROSEMIDE [Suspect]
     Indication: HYPERTENSION
     Dosage: 20 MG QD  ORAL,  (120 MG QD ORAL)
     Route: 048
     Dates: start: 20060701, end: 20080127
  4. FUROSEMIDE [Suspect]
     Indication: HYPERTENSION
     Dosage: 20 MG QD  ORAL,  (120 MG QD ORAL)
     Route: 048
     Dates: start: 20080127
  5. DONEPEZIL HCL [Suspect]
     Indication: DEMENTIA ALZHEIMER'S TYPE
     Dosage: 10 MG QD ORAL
     Route: 048
     Dates: start: 20060701
  6. BIMATOPROST (BIMATOPROST + TIMOLOL MALEATE) [Suspect]
     Indication: GLAUCOMA
     Dosage: 1 DROP DAILY OPHTHALMIC
     Route: 047
     Dates: start: 20070901
  7. ACETAMINOPHEN [Concomitant]
  8. ALPRAZOLAM [Concomitant]
  9. DORZOLAMIDE [Concomitant]
  10. BLACK HOREHOUND + HAWTHORN + PASSIONFLOWER + VALERIAN [Concomitant]
  11. GLIMEPIRIDE [Concomitant]
  12. POLYETHYLENE GLYCOL [Concomitant]
  13. ESOMEPRAZOLE MAGNESIUM [Concomitant]
  14. CLONAZEPAM [Concomitant]
  15. ASPIRIN LYSINE [Concomitant]

REACTIONS (15)
  - ABDOMINAL PAIN [None]
  - ATRIAL FIBRILLATION [None]
  - BLOOD GLUCOSE INCREASED [None]
  - BLOOD POTASSIUM INCREASED [None]
  - BLOOD SODIUM DECREASED [None]
  - BUNDLE BRANCH BLOCK RIGHT [None]
  - CARDIAC OUTPUT DECREASED [None]
  - CREATININE RENAL CLEARANCE DECREASED [None]
  - DIARRHOEA [None]
  - DRUG INTERACTION [None]
  - LABORATORY TEST ABNORMAL [None]
  - LOSS OF CONSCIOUSNESS [None]
  - MALAISE [None]
  - VENTRICULAR EXTRASYSTOLES [None]
  - VERTIGO [None]
